FAERS Safety Report 10215047 (Version 1)
Quarter: 2014Q2

REPORT INFORMATION
  Report Type: Spontaneous
  Country: US (occurrence: US)
  Receive Date: 20140603
  Receipt Date: 20140603
  Transmission Date: 20141212
  Serious: Yes (Other)
  Sender: FDA-Public Use
  Company Number: US-MYLANLABS-2014S1012516

PATIENT
  Age: 7 Month
  Sex: 0

DRUGS (1)
  1. TRANEXAMIC ACID [Suspect]
     Route: 065

REACTIONS (2)
  - Cerebral artery thrombosis [Recovered/Resolved]
  - Asthenia [Recovered/Resolved]
